FAERS Safety Report 25031609 (Version 1)
Quarter: 2025Q1

REPORT INFORMATION
  Report Type: Report from Study
  Country: SG (occurrence: SG)
  Receive Date: 20250303
  Receipt Date: 20250303
  Transmission Date: 20250409
  Serious: Yes (Hospitalization)
  Sender: TAKEDA
  Company Number: SG-TAKEDA-2025TUS005164

PATIENT
  Sex: Male
  Weight: 72.05 kg

DRUGS (2)
  1. FRUQUINTINIB [Suspect]
     Active Substance: FRUQUINTINIB
     Indication: Rectosigmoid cancer metastatic
     Dosage: UNK, QD
     Dates: start: 20241213, end: 20250113
  2. FRUQUINTINIB [Suspect]
     Active Substance: FRUQUINTINIB

REACTIONS (4)
  - Dizziness [Recovered/Resolved]
  - Dehydration [Recovered/Resolved]
  - Hypertension [Recovered/Resolved]
  - Abdominal distension [Recovered/Resolved]
